FAERS Safety Report 4605059-4 (Version None)
Quarter: 2005Q2

REPORT INFORMATION
  Report Type: 
  Country: None (occurrence: None)
  Receive Date: 20050217
  Receipt Date: 20041215
  Transmission Date: 20051028
  Serious: No
  Sender: FDA-Public Use
  Company Number: S04-USA-07833-01

PATIENT
  Age: 79 Year
  Sex: Male

DRUGS (9)
  1. NAMENDA [Suspect]
     Indication: AMNESIA
     Dosage: 30 MG ONCE PO
     Route: 048
     Dates: start: 20041213, end: 20041213
  2. NAMENDA [Suspect]
     Indication: AMNESIA
     Dosage: 5 MG QD PO
     Route: 048
     Dates: start: 20041206, end: 20041212
  3. ULTRAM [Suspect]
     Indication: ARTHRITIS
     Dosage: 400 MG ONCE
     Dates: start: 20041213, end: 20041213
  4. ULTRAM [Suspect]
     Indication: ARTHRITIS
     Dosage: 50 MG PRN
  5. REMINYL [Concomitant]
  6. COUMADIN [Concomitant]
  7. ACCUPRIL [Concomitant]
  8. FLOMAX [Concomitant]
  9. DYAZIDE [Concomitant]

REACTIONS (4)
  - MULTIPLE DRUG OVERDOSE ACCIDENTAL [None]
  - SOMNOLENCE [None]
  - STOMACH DISCOMFORT [None]
  - VOMITING [None]
